FAERS Safety Report 9641545 (Version 1)
Quarter: 2013Q4

REPORT INFORMATION
  Report Type: Spontaneous
  Country: GB (occurrence: GB)
  Receive Date: 20131023
  Receipt Date: 20131023
  Transmission Date: 20140711
  Serious: Yes (Other)
  Sender: FDA-Public Use
  Company Number: GB-B.I. PHARMACEUTICALS,INC./RIDGEFIELD-2013-BI-33173UK

PATIENT
  Age: 77 Year
  Sex: Female
  Weight: 84.5 kg

DRUGS (12)
  1. PRADAXA [Suspect]
     Indication: ATRIAL FIBRILLATION
     Dosage: 75 MG
     Route: 048
     Dates: start: 20121002, end: 20130717
  2. ADCAL-D3 [Concomitant]
     Dosage: 1DF
  3. ALLOPURINOL [Concomitant]
     Dosage: 200 MG
  4. AMITRIPTYLINE [Concomitant]
     Dosage: 20 MG
  5. ATORVASTATIN [Concomitant]
     Dosage: 20 MG
  6. DENOSUMAB [Concomitant]
     Dosage: 1 DF
     Route: 058
  7. DIGOXIN [Concomitant]
     Dosage: 125 MCG
  8. LISINOPRIL [Concomitant]
     Dosage: 20 MG
  9. PARACETAMOL [Concomitant]
     Dosage: 2000 MG
  10. RIVAROXABAN [Concomitant]
     Dosage: 15 MG
  11. SOTALOL [Concomitant]
     Dosage: 40 MG
  12. ZAMADOL SR [Concomitant]
     Dosage: 200 MG

REACTIONS (1)
  - Deep vein thrombosis [Recovered/Resolved]
